FAERS Safety Report 12572392 (Version 1)
Quarter: 2016Q3

REPORT INFORMATION
  Report Type: Report from Study
  Country: BR (occurrence: BR)
  Receive Date: 20160719
  Receipt Date: 20160719
  Transmission Date: 20161109
  Serious: Yes (Life-Threatening)
  Sender: FDA-Public Use
  Company Number: PHHY2016BR098380

PATIENT
  Sex: Female

DRUGS (1)
  1. FORASEQ [Suspect]
     Active Substance: BUDESONIDE\FORMOTEROL FUMARATE
     Indication: PRODUCT USED FOR UNKNOWN INDICATION
     Dosage: UNK, BID (MORNING AND AT NIGHT)
     Route: 055

REACTIONS (5)
  - Apparent death [Unknown]
  - Wheezing [Unknown]
  - Malaise [Unknown]
  - Cardiac disorder [Unknown]
  - Fatigue [Unknown]
